FAERS Safety Report 4360284-5 (Version None)
Quarter: 2004Q2

REPORT INFORMATION
  Report Type: 
  Country: None (occurrence: None)
  Receive Date: 20040518
  Receipt Date: 20040518
  Transmission Date: 20050107
  Serious: Yes (Other)
  Sender: FDA-Public Use
  Company Number: None

PATIENT
  Age: 72 Year
  Sex: Male
  Weight: 125 kg

DRUGS (1)
  1. RITUXAN (RITUXIMAB) (375 MG/M2) 900 MG IV X 1 [Suspect]
     Indication: NON-HODGKIN'S LYMPHOMA
     Dosage: 900MG/90ML IV
     Route: 042
     Dates: start: 20030128

REACTIONS (2)
  - CHILLS [None]
  - PYREXIA [None]
